FAERS Safety Report 22816600 (Version 3)
Quarter: 2023Q4

REPORT INFORMATION
  Report Type: Report from Study
  Country: US (occurrence: US)
  Receive Date: 20230811
  Receipt Date: 20231212
  Transmission Date: 20240109
  Serious: Yes (Life-Threatening, Hospitalization, Other)
  Sender: FDA-Public Use
  Company Number: US-TAKEDA-2021TUS064302

PATIENT
  Age: 64 Year
  Sex: Male

DRUGS (2)
  1. ICATIBANT [Suspect]
     Active Substance: ICATIBANT ACETATE
     Indication: Immune system disorder
     Dosage: 30 MILLIGRAM
     Route: 058
  2. ICATIBANT [Suspect]
     Active Substance: ICATIBANT ACETATE
     Indication: Immune system disorder
     Dosage: 30 MILLIGRAM
     Route: 058

REACTIONS (6)
  - Food poisoning [Unknown]
  - Decreased appetite [Unknown]
  - Vascular device infection [Unknown]
  - Heart rate increased [Unknown]
  - Palpitations [Unknown]
  - COVID-19 [Unknown]

NARRATIVE: CASE EVENT DATE: 20211015
